FAERS Safety Report 15916602 (Version 1)
Quarter: 2019Q1

REPORT INFORMATION
  Report Type: Spontaneous
  Country: US (occurrence: US)
  Receive Date: 20190205
  Receipt Date: 20190205
  Transmission Date: 20190417
  Serious: No
  Sender: FDA-Public Use
  Company Number: US-DRREDDYS-USA/USA/18/0104808

PATIENT
  Age: 72 Year
  Sex: Female
  Weight: 61.36 kg

DRUGS (3)
  1. SUMATRIPTAN INJECTION USP, 6 MG/0.5 ML [Suspect]
     Active Substance: SUMATRIPTAN
     Indication: MIGRAINE
     Route: 065
  2. LYRICA [Concomitant]
     Active Substance: PREGABALIN
     Indication: MIGRAINE
     Route: 065
  3. IBUPROFEN. [Concomitant]
     Active Substance: IBUPROFEN
     Indication: MIGRAINE
     Route: 065

REACTIONS (3)
  - Product physical issue [Unknown]
  - Drug dose omission by device [Unknown]
  - Injection site swelling [Unknown]
